FAERS Safety Report 7553983-5 (Version None)
Quarter: 2011Q2

REPORT INFORMATION
  Report Type: 
  Country: None (occurrence: None)
  Receive Date: 20110617
  Receipt Date: 20110601
  Transmission Date: 20111010
  Serious: No
  Sender: FDA-Public Use
  Company Number: US-B.I. PHARMACEUTICALS,INC./RIDGEFIELD-2011-BP-09189BP

PATIENT
  Sex: Male
  Weight: 117.93 kg

DRUGS (11)
  1. LISINOPRIL [Concomitant]
  2. GLIPIZIDE [Concomitant]
     Dosage: 20 MG
  3. PRADAXA [Suspect]
     Indication: ATRIAL FIBRILLATION
     Dosage: 300 MG
     Dates: start: 20101118, end: 20110320
  4. PROZAC [Concomitant]
     Dosage: 20 MG
  5. OMEPRAZOLE [Concomitant]
     Dosage: 40 MG
  6. DICLOFENAC SODIUM [Concomitant]
     Dosage: 150 MG
  7. SIMVASTATIN [Concomitant]
     Dosage: 40 MG
  8. CARDURA [Concomitant]
     Dosage: 4 MG
  9. PRADAXA [Suspect]
     Indication: ANTICOAGULANT THERAPY
     Dosage: 150 MG
  10. TOPROL-XL [Concomitant]
     Dosage: 50 MG
  11. LONOX [Concomitant]

REACTIONS (5)
  - NAUSEA [None]
  - ABDOMINAL PAIN UPPER [None]
  - DIARRHOEA [None]
  - DYSPEPSIA [None]
  - FLATULENCE [None]
